FAERS Safety Report 23925078 (Version 1)
Quarter: 2024Q2

REPORT INFORMATION
  Report Type: Spontaneous
  Country: US (occurrence: None)
  Receive Date: 20240531
  Receipt Date: 20240531
  Transmission Date: 20240716
  Serious: No
  Sender: FDA-Public Use
  Company Number: None

PATIENT

DRUGS (2)
  1. MANNITOL [Suspect]
     Active Substance: MANNITOL
     Dosage: OTHER ROUTE : INJECTION;?
     Route: 050
  2. OSMITROL [Suspect]
     Active Substance: MANNITOL
     Dosage: OTHER ROUTE : INJECTION;?
     Route: 050

REACTIONS (3)
  - Product label issue [None]
  - Product label confusion [None]
  - Wrong dose [None]
